FAERS Safety Report 16748684 (Version 1)
Quarter: 2019Q3

REPORT INFORMATION
  Report Type: Spontaneous
  Country: CA (occurrence: CA)
  Receive Date: 20190828
  Receipt Date: 20190828
  Transmission Date: 20191005
  Serious: Yes (Hospitalization)
  Sender: FDA-Public Use
  Company Number: CA-TEVA-2019-CA-1097847

PATIENT
  Age: 4 Year
  Sex: Female
  Weight: 15 kg

DRUGS (9)
  1. METHOTREXATE(MANUFACTURER UNKNOWN) [Suspect]
     Active Substance: METHOTREXATE
     Indication: ACUTE LYMPHOCYTIC LEUKAEMIA
     Route: 037
  2. VINCRISTINE SULFATE. [Concomitant]
     Active Substance: VINCRISTINE SULFATE
     Route: 042
  3. METHYLPREDNISOLONE NOS [Concomitant]
     Active Substance: METHYLPREDNISOLONE
  4. PEGASPARAGINASE [Concomitant]
     Active Substance: PEGASPARGASE
  5. METHOTREXATE(MANUFACTURER UNKNOWN) [Suspect]
     Active Substance: METHOTREXATE
     Route: 042
  6. PREDNISONE. [Concomitant]
     Active Substance: PREDNISONE
  7. METHOTREXATE(MANUFACTURER UNKNOWN) [Suspect]
     Active Substance: METHOTREXATE
     Route: 030
  8. CYTARABINE INJECTION [Concomitant]
     Active Substance: CYTARABINE
  9. DOXORUBICIN HYDROCHLORIDE INJECTION [Concomitant]
     Active Substance: DOXORUBICIN HYDROCHLORIDE

REACTIONS (4)
  - Oropharyngeal plaque [Recovering/Resolving]
  - Mucosal inflammation [Recovering/Resolving]
  - Decreased appetite [Recovering/Resolving]
  - Ulcer [Recovering/Resolving]
